FAERS Safety Report 7274717-8 (Version None)
Quarter: 2011Q1

REPORT INFORMATION
  Report Type: 
  Country: None (occurrence: None)
  Receive Date: 20110204
  Receipt Date: 20110126
  Transmission Date: 20110831
  Serious: Yes (Other)
  Sender: FDA-Public Use
  Company Number: US-RB-019956-11

PATIENT
  Age: 15 Year
  Sex: Male

DRUGS (1)
  1. MUCINEX TABLETS UNSPECIFIED [Suspect]
     Dosage: THE PATIENT TOOK TWO TABLETS ONCE
     Route: 048

REACTIONS (3)
  - FEELING ABNORMAL [None]
  - HALLUCINATION [None]
  - MYDRIASIS [None]
